FAERS Safety Report 4947911-6 (Version None)
Quarter: 2006Q1

REPORT INFORMATION
  Report Type: 
  Country: None (occurrence: None)
  Receive Date: 20060314
  Receipt Date: 20060303
  Transmission Date: 20060701
  Serious: Yes (Hospitalization, Other)
  Sender: FDA-Public Use
  Company Number: 2006033322

PATIENT
  Age: 53 Year
  Sex: Male
  Weight: 81.6475 kg

DRUGS (2)
  1. ZOLOFT [Suspect]
     Indication: DEPRESSION
     Dosage: UNKNOWN
     Route: 065
  2. INSULIN (INSULIN) [Concomitant]

REACTIONS (6)
  - APPENDICITIS PERFORATED [None]
  - DYSKINESIA [None]
  - MUSCLE TWITCHING [None]
  - PARAESTHESIA [None]
  - SEXUAL DYSFUNCTION [None]
  - SLEEP DISORDER [None]
